FAERS Safety Report 18351558 (Version 1)
Quarter: 2020Q4

REPORT INFORMATION
  Report Type: Spontaneous
  Country: GB (occurrence: GB)
  Receive Date: 20201006
  Receipt Date: 20201006
  Transmission Date: 20210114
  Serious: Yes (Life-Threatening, Hospitalization, Other)
  Sender: FDA-Public Use
  Company Number: NVSC2020GB203150

PATIENT
  Age: 52 Year
  Sex: Male

DRUGS (11)
  1. INFLIXIMAB [Suspect]
     Active Substance: INFLIXIMAB
     Indication: COLITIS ULCERATIVE
     Dosage: 5 MG/KG, ON DAY 3 OF ADMISSION
     Route: 065
  2. COTRIMOXAZOLE [Concomitant]
     Active Substance: SULFAMETHOXAZOLE\TRIMETHOPRIM
     Indication: PROPHYLAXIS AGAINST GASTROINTESTINAL ULCER
     Dosage: 960 MG, ALTERNATE DAY
     Route: 065
  3. COTRIMOXAZOLE [Concomitant]
     Active Substance: SULFAMETHOXAZOLE\TRIMETHOPRIM
     Indication: PROPHYLACTIC CHEMOTHERAPY
  4. INFLIXIMAB [Suspect]
     Active Substance: INFLIXIMAB
     Dosage: 3 YEARS PRIOR CONTINUING FOR 22 MONTHS
     Route: 065
  5. AZATHIOPRINE. [Suspect]
     Active Substance: AZATHIOPRINE
     Dosage: 75 MG, QD
     Route: 065
  6. ADALIMUMAB [Suspect]
     Active Substance: ADALIMUMAB
     Indication: COLITIS ULCERATIVE
     Dosage: 40 MG, BIW  (EVERY OTHER WEEKLAST DOSE OF ADALIMUMAB 40 MG WAS 21 DAYS PRIOR)
     Route: 058
  7. PREDNISOLONE. [Suspect]
     Active Substance: PREDNISOLONE
     Indication: COLITIS ULCERATIVE
     Dosage: 40 MG, QD (WEANING DOSE)
     Route: 048
  8. HYDROCORTISONE SODIUM SUCCINATE [Suspect]
     Active Substance: HYDROCORTISONE SODIUM SUCCINATE
     Indication: COLITIS ULCERATIVE
     Dosage: UNK
     Route: 042
  9. PREDNISOLONE. [Suspect]
     Active Substance: PREDNISOLONE
     Dosage: 20 MG, QD (REDUCED)
     Route: 065
  10. AZATHIOPRINE. [Suspect]
     Active Substance: AZATHIOPRINE
     Indication: COLITIS ULCERATIVE
     Dosage: 50 MG, QD
     Route: 065
  11. HYDROCORTISONE SODIUM SUCCINATE [Suspect]
     Active Substance: HYDROCORTISONE SODIUM SUCCINATE
     Dosage: UNK (RECOMMENCED)
     Route: 042

REACTIONS (3)
  - Atypical pneumonia [Unknown]
  - Paracoccidioides infection [Recovered/Resolved]
  - Colitis ulcerative [Unknown]
